FAERS Safety Report 8035986-X (Version None)
Quarter: 2012Q1

REPORT INFORMATION
  Report Type: 
  Country: None (occurrence: None)
  Receive Date: 20120106
  Receipt Date: 20111222
  Transmission Date: 20120608
  Serious: Yes (Disabling)
  Sender: FDA-Public Use
  Company Number: GB-1189582

PATIENT
  Age: 62 Year
  Sex: Female
  Weight: 68 kg

DRUGS (17)
  1. FERROUS SULFATE TAB [Concomitant]
  2. CEPHALEXIN [Concomitant]
  3. DARBEPOETIN ALFA [Concomitant]
  4. METOCLOPRAMIDE [Concomitant]
  5. COTRIM [Concomitant]
  6. IRBESARTAN [Concomitant]
  7. PREDNISOLONE [Concomitant]
  8. SYMBICORT [Concomitant]
  9. AZATHIOPRINE [Concomitant]
  10. CILOXAN [Suspect]
     Dates: start: 20111125, end: 20111202
  11. CILOXAN [Suspect]
     Dates: start: 20111213
  12. NYSTATIN [Concomitant]
  13. LANSOPRAZOLE [Concomitant]
  14. CYCLOPHOSPHAMIDE [Concomitant]
  15. NASOBEC AQUEOUS [Concomitant]
  16. ALENDRONIC ACID [Concomitant]
  17. ONDANSETRON [Concomitant]

REACTIONS (1)
  - TENDON RUPTURE [None]
